FAERS Safety Report 5162507-1 (Version None)
Quarter: 2006Q4

REPORT INFORMATION
  Report Type: 
  Country: None (occurrence: None)
  Receive Date: 20061127
  Receipt Date: 20061127
  Transmission Date: 20070319
  Serious: Yes (Other)
  Sender: FDA-Public Use
  Company Number: None

PATIENT
  Sex: Female
  Weight: 82.3279 kg

DRUGS (2)
  1. CLIMARA [Suspect]
     Indication: HYSTERECTOMY
     Dosage: ONE PATCH/D (TRANSDERMALLY)  LIFETIME NEED
     Route: 062
  2. CLIMARA [Suspect]
     Indication: UTERINE LEIOMYOMA
     Dosage: ONE PATCH/D (TRANSDERMALLY)  LIFETIME NEED
     Route: 062

REACTIONS (3)
  - DRUG INEFFECTIVE [None]
  - PHARMACEUTICAL PRODUCT COMPLAINT [None]
  - SKIN IRRITATION [None]
